FAERS Safety Report 8693922 (Version 2)
Quarter: 2013Q1

REPORT INFORMATION
  Report Type: Spontaneous
  Country: DK (occurrence: None)
  Receive Date: 20120711
  Receipt Date: 20121227
  Transmission Date: 20140127
  Serious: Yes (Other)
  Sender: FDA-Public Use
  Company Number: 0218608

PATIENT
  Age: 36 Year
  Sex: Male

DRUGS (1)
  1. TACHOSIL [Suspect]
     Indication: PRODUCT USED FOR UNKNOWN INDICATION
     Dosage: 2 FLEECES: 1 ON DORSAL SIDE, 1 ON VENTRAL SIDE
     Dates: start: 20100519, end: 20100519

REACTIONS (3)
  - Foreign body reaction [None]
  - Necrosis [None]
  - Fibrosis [None]
